FAERS Safety Report 7760388-0 (Version None)
Quarter: 2011Q3

REPORT INFORMATION
  Report Type: 
  Country: None (occurrence: None)
  Receive Date: 20110919
  Receipt Date: 20110908
  Transmission Date: 20111222
  Serious: Yes (Other)
  Sender: FDA-Public Use
  Company Number: PHFR2011GB03829

PATIENT
  Sex: Female

DRUGS (1)
  1. TEGRETOL [Suspect]
     Dosage: UNK
     Route: 065

REACTIONS (5)
  - SLEEP DISORDER [None]
  - BALANCE DISORDER [None]
  - HEADACHE [None]
  - MOOD SWINGS [None]
  - VISION BLURRED [None]
